FAERS Safety Report 7297374-3 (Version None)
Quarter: 2011Q1

REPORT INFORMATION
  Report Type: 
  Country: None (occurrence: None)
  Receive Date: 20110207
  Receipt Date: 20110128
  Transmission Date: 20110831
  Serious: Yes (Other)
  Sender: FDA-Public Use
  Company Number: 1000016622

PATIENT
  Age: 58 Year
  Sex: Female
  Weight: 122.4 kg

DRUGS (5)
  1. GABAPENTIN (GABAPENTIN ) (GABAPENTIN) [Concomitant]
  2. CALTRATE (CALCIUM, VITAMIN D) (CALCIUM, VITAMIN D) [Concomitant]
  3. ZOLPIDEM (ZOLPIDEM-) (ZOLPIDEM) [Concomitant]
  4. SAVELLA [Suspect]
     Indication: FIBROMYALGIA
     Dosage: 100 MG (50 MG, 2 IN 1 D)
     Dates: start: 20100424, end: 20100526
  5. CYMBALTA (DULOXETINE HYDROCHLORIDE) (DULOXETINE HYDROCHLORIDE) [Concomitant]

REACTIONS (14)
  - HYPERTENSION [None]
  - VENTRICULAR HYPERTROPHY [None]
  - NECK PAIN [None]
  - DYSPNOEA [None]
  - DECREASED APPETITE [None]
  - FATIGUE [None]
  - NAUSEA [None]
  - ABNORMAL DREAMS [None]
  - DIASTOLIC DYSFUNCTION [None]
  - HEADACHE [None]
  - CRYING [None]
  - MUSCULOSKELETAL PAIN [None]
  - ANGER [None]
  - HEART RATE INCREASED [None]
